FAERS Safety Report 5114922-X (Version None)
Quarter: 2006Q3

REPORT INFORMATION
  Report Type: 
  Country: None (occurrence: None)
  Receive Date: 20060926
  Receipt Date: 20060914
  Transmission Date: 20061208
  Serious: Yes (Hospitalization, Other)
  Sender: FDA-Public Use
  Company Number: PHBS2006TW14095

PATIENT
  Age: 58 Year
  Sex: Male

DRUGS (4)
  1. STEROIDS NOS [Concomitant]
  2. IMATINIB [Suspect]
     Indication: CHRONIC MYELOID LEUKAEMIA
     Dosage: 100 MG/DAY
     Route: 048
     Dates: start: 20050201
  3. IMATINIB [Suspect]
     Dosage: 400 MG/DAY
     Route: 048
     Dates: start: 20040701
  4. INTERFERON ALFA [Concomitant]
     Indication: CHRONIC MYELOID LEUKAEMIA

REACTIONS (19)
  - ACUTE RESPIRATORY FAILURE [None]
  - BLOOD AMYLASE INCREASED [None]
  - C-REACTIVE PROTEIN INCREASED [None]
  - COUGH [None]
  - DERMATITIS [None]
  - DYSPNOEA [None]
  - HAEMOGLOBIN DECREASED [None]
  - HERPES ZOSTER [None]
  - HYPOXIA [None]
  - LEUKOCYTOSIS [None]
  - LOCAL SWELLING [None]
  - MUMPS [None]
  - MUMPS ANTIBODY TEST POSITIVE [None]
  - PNEUMONITIS [None]
  - PRURITUS [None]
  - PULMONARY FIBROSIS [None]
  - PULMONARY HYPERTENSION [None]
  - PYREXIA [None]
  - SKIN LESION [None]
